FAERS Safety Report 17920841 (Version 2)
Quarter: 2020Q3

REPORT INFORMATION
  Report Type: Spontaneous
  Country: US (occurrence: US)
  Receive Date: 20200622
  Receipt Date: 20200729
  Transmission Date: 20201103
  Serious: No
  Sender: FDA-Public Use
  Company Number: US-SHIRE-US202020124

PATIENT
  Age: 45 Year
  Sex: Male
  Weight: 75.74 kg

DRUGS (2)
  1. PENTASA [Suspect]
     Active Substance: MESALAMINE
     Indication: COLITIS ULCERATIVE
     Dosage: 1 GRAM, 1X/DAY:QD
     Route: 048
     Dates: start: 20200527
  2. PENTASA [Suspect]
     Active Substance: MESALAMINE
     Dosage: 2 GRAM, 2X/DAY:BID
     Route: 048
     Dates: start: 20200611

REACTIONS (1)
  - Product residue present [Not Recovered/Not Resolved]

NARRATIVE: CASE EVENT DATE: 20200612
